FAERS Safety Report 10629512 (Version 1)
Quarter: 2014Q4

REPORT INFORMATION
  Report Type: Spontaneous
  Country: US (occurrence: US)
  Receive Date: 20141205
  Receipt Date: 20141205
  Transmission Date: 20150529
  Serious: No
  Sender: FDA-Public Use
  Company Number: US-BRISTOL-MYERS SQUIBB COMPANY-20656120

PATIENT
  Age: 78 Year
  Sex: Female

DRUGS (1)
  1. BARACLUDE [Suspect]
     Active Substance: ENTECAVIR
     Dosage: 1DF: SHE THOUGHT DOSE WAS 1 MG OR SOMETHING
     Dates: start: 20140203

REACTIONS (1)
  - Drug dose omission [Unknown]
